FAERS Safety Report 17315109 (Version 1)
Quarter: 2020Q1

REPORT INFORMATION
  Report Type: Spontaneous
  Country: CA (occurrence: CA)
  Receive Date: 20200124
  Receipt Date: 20200124
  Transmission Date: 20200409
  Serious: Yes (Hospitalization)
  Sender: FDA-Public Use
  Company Number: NVSC2020CA017356

PATIENT
  Age: 7 Year
  Sex: Male
  Weight: 44.5 kg

DRUGS (2)
  1. RISPERIDONE. [Suspect]
     Active Substance: RISPERIDONE
     Dosage: 0.5 MG, QD
     Route: 065
  2. RISPERIDONE. [Suspect]
     Active Substance: RISPERIDONE
     Indication: ATTENTION DEFICIT/HYPERACTIVITY DISORDER
     Dosage: 0.25 MG, QD
     Route: 065

REACTIONS (13)
  - Serum sickness-like reaction [Recovered/Resolved]
  - Arthralgia [Recovered/Resolved]
  - Periorbital oedema [Recovered/Resolved]
  - Papule [Recovered/Resolved]
  - Gait disturbance [Recovered/Resolved]
  - Rash pruritic [Recovered/Resolved]
  - Rash erythematous [Recovered/Resolved]
  - Peripheral swelling [Recovered/Resolved]
  - Rash [Recovered/Resolved]
  - Petechiae [Recovered/Resolved]
  - Product use in unapproved indication [Unknown]
  - Abdominal pain [Recovered/Resolved]
  - Pyrexia [Recovered/Resolved]
